FAERS Safety Report 26124151 (Version 1)
Quarter: 2025Q4

REPORT INFORMATION
  Report Type: Report from Study
  Country: MX (occurrence: MX)
  Receive Date: 20251205
  Receipt Date: 20251205
  Transmission Date: 20260118
  Serious: Yes (Hospitalization, Other)
  Sender: EMD SERONO INC
  Company Number: MX-Merck Healthcare KGaA-2025061049

PATIENT
  Age: 10 Year
  Sex: Female

DRUGS (1)
  1. SAIZEN [Suspect]
     Active Substance: SOMATROPIN
     Indication: Growth hormone deficiency
     Dosage: BATCH EXPIRATION DATE: APR-2026
     Dates: start: 20231116, end: 20250707

REACTIONS (5)
  - Rheumatic disorder [Not Recovered/Not Resolved]
  - Muscle spasms [Not Recovered/Not Resolved]
  - Knee deformity [Not Recovered/Not Resolved]
  - Appendicitis [Recovering/Resolving]
  - Procedural pain [Not Recovered/Not Resolved]

NARRATIVE: CASE EVENT DATE: 20250101
